FAERS Safety Report 25108339 (Version 2)
Quarter: 2025Q2

REPORT INFORMATION
  Report Type: Report from Study
  Country: US (occurrence: US)
  Receive Date: 20250322
  Receipt Date: 20250401
  Transmission Date: 20250716
  Serious: Yes (Other)
  Sender: BRISTOL MYERS SQUIBB
  Company Number: US-BRISTOL-MYERS SQUIBB COMPANY-2025-043086

PATIENT
  Age: 60 Year
  Sex: Female
  Weight: 169.64 kg

DRUGS (2)
  1. ORENCIA [Suspect]
     Active Substance: ABATACEPT
     Indication: Rheumatoid arthritis
     Route: 042
     Dates: start: 202410
  2. HUMAN IMMUNOGLOBULIN G [Concomitant]
     Active Substance: HUMAN IMMUNOGLOBULIN G
     Indication: Product used for unknown indication

REACTIONS (6)
  - Infection [Unknown]
  - Headache [Unknown]
  - Sinusitis [Recovering/Resolving]
  - Fungal infection [Recovering/Resolving]
  - Pneumonitis [Recovering/Resolving]
  - Malaise [Unknown]
